FAERS Safety Report 7224281-4 (Version None)
Quarter: 2011Q1

REPORT INFORMATION
  Report Type: 
  Country: None (occurrence: None)
  Receive Date: 20110106
  Receipt Date: 20110106
  Transmission Date: 20110831
  Serious: Yes (Hospitalization)
  Sender: FDA-Public Use
  Company Number: None

PATIENT
  Age: 71 Year
  Sex: Female
  Weight: 109 kg

DRUGS (20)
  1. GLUCOSAMINE/CHONDROITIN [Concomitant]
  2. PERCOCET [Concomitant]
  3. LASIX [Concomitant]
  4. DIAZEPAM [Concomitant]
  5. DARVOCET-N 100 [Concomitant]
  6. JANUVIA [Concomitant]
  7. GLOBAPENTIN [Concomitant]
  8. VYTORIN [Concomitant]
  9. ASPIRIN [Suspect]
     Dosage: 325MG DAILY PO
     Route: 048
  10. PREVACID [Concomitant]
  11. VIT D [Concomitant]
  12. ALDACTAZIDE [Concomitant]
  13. NIASPAN [Concomitant]
  14. ATROVENT [Concomitant]
  15. ZOLOFT [Concomitant]
  16. LISINOPRIL [Concomitant]
  17. IRON SULFATETHIAMIN COMPOUND TAB [Concomitant]
  18. VITAMIN B-12 [Concomitant]
  19. LOVENOX [Suspect]
     Indication: PULMONARY EMBOLISM
     Dosage: 120MG Q HRS 1
  20. M.V.I. [Concomitant]

REACTIONS (3)
  - BLOOD PRESSURE INCREASED [None]
  - HAEMORRHAGIC ANAEMIA [None]
  - EPISTAXIS [None]
